FAERS Safety Report 7380753-3 (Version None)
Quarter: 2011Q1

REPORT INFORMATION
  Report Type: 
  Country: None (occurrence: None)
  Receive Date: 20110329
  Receipt Date: 20110321
  Transmission Date: 20110831
  Serious: Yes (Hospitalization)
  Sender: FDA-Public Use
  Company Number: A0884291A

PATIENT
  Age: 33 Year
  Sex: Female
  Weight: 136.4 kg

DRUGS (11)
  1. FAMOTIDINE [Concomitant]
  2. LISINOPRIL [Concomitant]
  3. LAMICTAL [Suspect]
     Indication: BIPOLAR DISORDER
     Dosage: 400MG PER DAY
     Route: 048
     Dates: end: 20100501
  4. KLONOPIN [Concomitant]
  5. GEODON [Concomitant]
  6. SIMVASTATIN [Concomitant]
  7. HYDROCHLOROTHIAZIDE [Concomitant]
  8. ADVAIR DISKUS 100/50 [Concomitant]
  9. METFORMIN HCL [Concomitant]
  10. LAMOTRIGINE [Suspect]
     Indication: BIPOLAR DISORDER
     Dosage: 400MG PER DAY
     Route: 048
     Dates: end: 20100501
  11. ACTOS [Concomitant]

REACTIONS (4)
  - ERYSIPELAS [None]
  - STEVENS-JOHNSON SYNDROME [None]
  - RASH [None]
  - HYPERSENSITIVITY [None]
